FAERS Safety Report 17876800 (Version 1)
Quarter: 2020Q2

REPORT INFORMATION
  Report Type: Spontaneous
  Country: US (occurrence: US)
  Receive Date: 20200609
  Receipt Date: 20200609
  Transmission Date: 20200714
  Serious: No
  Sender: FDA-Public Use
  Company Number: US-SA-2020SA146328

PATIENT

DRUGS (2)
  1. LANTUS [Suspect]
     Active Substance: INSULIN GLARGINE
     Indication: TYPE 2 DIABETES MELLITUS
     Dosage: 20 IU, QD
  2. OZEMPIC [Concomitant]
     Active Substance: SEMAGLUTIDE
     Dosage: UNK

REACTIONS (1)
  - Wrong technique in device usage process [Unknown]
